FAERS Safety Report 9495347 (Version 1)
Quarter: 2013Q3

REPORT INFORMATION
  Report Type: Spontaneous
  Country: BR (occurrence: BR)
  Receive Date: 20130903
  Receipt Date: 20130903
  Transmission Date: 20140515
  Serious: Yes (Hospitalization)
  Sender: FDA-Public Use
  Company Number: BR-GLAXOSMITHKLINE-A1039912A

PATIENT
  Age: 95 Year
  Sex: Male
  Weight: 50 kg

DRUGS (11)
  1. AVODART [Suspect]
     Indication: BENIGN PROSTATIC HYPERPLASIA
     Dosage: .5MG IN THE MORNING
     Route: 048
     Dates: start: 2012, end: 20130827
  2. LEVODOPA/CARBIDOPA [Concomitant]
     Indication: PRODUCT USED FOR UNKNOWN INDICATION
  3. PANTOPRAZOLE [Concomitant]
     Indication: PRODUCT USED FOR UNKNOWN INDICATION
  4. CLOPIDOGREL [Concomitant]
  5. ASPIRIN [Concomitant]
  6. ATORVASTATIN CALCIUM [Concomitant]
  7. COMBIGAN [Concomitant]
  8. VITAMIN D [Concomitant]
  9. VITAMIN C [Concomitant]
  10. VITAMIN B [Concomitant]
  11. FOLIC ACID [Concomitant]

REACTIONS (4)
  - Urinary tract infection [Not Recovered/Not Resolved]
  - Fatigue [Not Recovered/Not Resolved]
  - Hypotension [Not Recovered/Not Resolved]
  - Decreased appetite [Not Recovered/Not Resolved]
